FAERS Safety Report 5743615-0 (Version None)
Quarter: 2008Q2

REPORT INFORMATION
  Report Type: 
  Country: None (occurrence: None)
  Receive Date: 20080520
  Receipt Date: 20080507
  Transmission Date: 20081010
  Serious: Yes (Hospitalization)
  Sender: FDA-Public Use
  Company Number: FR-BAYER-200818485GPV

PATIENT
  Age: 77 Year
  Sex: Female

DRUGS (4)
  1. CIPROFLOXACIN HCL [Suspect]
     Indication: ATYPICAL MYCOBACTERIAL INFECTION
     Dosage: UNIT DOSE: 750 MG
     Route: 048
     Dates: start: 20080109, end: 20080215
  2. CIPROFLOXACIN HCL [Suspect]
     Dosage: UNIT DOSE: 750 MG
     Route: 048
     Dates: start: 20080225, end: 20080416
  3. ZYVOX [Suspect]
     Indication: ATYPICAL MYCOBACTERIAL INFECTION
     Route: 048
     Dates: start: 20080225, end: 20080416
  4. BACTRIM [Concomitant]
     Indication: ATYPICAL MYCOBACTERIAL INFECTION
     Route: 065
     Dates: start: 20080109, end: 20080215

REACTIONS (2)
  - HYPERLACTACIDAEMIA [None]
  - LIVER DISORDER [None]
